FAERS Safety Report 5523213-4 (Version None)
Quarter: 2007Q4

REPORT INFORMATION
  Report Type: 
  Country: None (occurrence: None)
  Receive Date: 20071116
  Receipt Date: 20071116
  Transmission Date: 20080405
  Serious: Yes (Hospitalization)
  Sender: FDA-Public Use
  Company Number: None

PATIENT
  Sex: Female
  Weight: 77.27 kg

DRUGS (2)
  1. FLUOROURACIL [Suspect]
     Dosage: 7040 MG  5FU INFUSED OVER 96 HOURS
  2. MITOMYCIN-C [Suspect]
     Dosage: 17.6 MG

REACTIONS (4)
  - ABDOMINAL PAIN UPPER [None]
  - CONDITION AGGRAVATED [None]
  - GASTROOESOPHAGEAL REFLUX DISEASE [None]
  - PRURITUS GENERALISED [None]
